FAERS Safety Report 14106641 (Version 17)
Quarter: 2018Q4

REPORT INFORMATION
  Report Type: Spontaneous
  Country: US (occurrence: US)
  Receive Date: 20171019
  Receipt Date: 20181002
  Transmission Date: 20190204
  Serious: Yes (Other)
  Sender: FDA-Public Use
  Company Number: US-PFIZER INC-2017448608

PATIENT
  Age: 79 Year
  Sex: Female
  Weight: 73 kg

DRUGS (4)
  1. FASLODEX [Concomitant]
     Active Substance: FULVESTRANT
     Dosage: UNK
  2. IBRANCE [Suspect]
     Active Substance: PALBOCICLIB
     Indication: BREAST CANCER METASTATIC
     Dosage: 125 MG, DAILY
     Route: 048
     Dates: start: 20171014, end: 20171110
  3. IBRANCE [Suspect]
     Active Substance: PALBOCICLIB
     Dosage: 125 MG, DAILY
     Route: 048
     Dates: start: 20171120, end: 20171221
  4. IBRANCE [Suspect]
     Active Substance: PALBOCICLIB
     Dosage: 100 MG, DAILY
     Route: 048
     Dates: start: 20171222, end: 20180322

REACTIONS (30)
  - Mucosal inflammation [Recovering/Resolving]
  - White blood cell count increased [Unknown]
  - Tenderness [Unknown]
  - White blood cell count decreased [Unknown]
  - Pleural effusion [Unknown]
  - Emotional disorder [Unknown]
  - Oral mucosal blistering [Recovering/Resolving]
  - Nausea [Unknown]
  - Vulvovaginal dryness [Not Recovered/Not Resolved]
  - Nodule [Recovering/Resolving]
  - Anaemia [Recovering/Resolving]
  - Mouth swelling [Unknown]
  - Rash [Recovering/Resolving]
  - Neoplasm progression [Unknown]
  - Hot flush [Unknown]
  - Alopecia [Unknown]
  - Dizziness [Unknown]
  - Decreased appetite [Unknown]
  - Arthralgia [Unknown]
  - Thrombocytopenia [Recovering/Resolving]
  - Dry skin [Not Recovered/Not Resolved]
  - Mouth ulceration [Recovered/Resolved]
  - Insomnia [Recovering/Resolving]
  - Fatigue [Unknown]
  - Pain [Unknown]
  - Mood swings [Unknown]
  - Haemoptysis [Unknown]
  - Leukopenia [Recovering/Resolving]
  - Neutropenia [Recovering/Resolving]
  - Full blood count decreased [Unknown]

NARRATIVE: CASE EVENT DATE: 2017
